FAERS Safety Report 5896995-X (Version None)
Quarter: 2008Q3

REPORT INFORMATION
  Report Type: 
  Country: None (occurrence: None)
  Receive Date: 20080924
  Receipt Date: 20080318
  Transmission Date: 20090109
  Serious: Yes (Other)
  Sender: FDA-Public Use
  Company Number: US-ASTRAZENECA-2008UW03922

PATIENT
  Age: 10361 Day
  Sex: Male

DRUGS (19)
  1. SEROQUEL [Suspect]
     Indication: BIPOLAR DISORDER
     Route: 048
     Dates: start: 20051206
  2. SEROQUEL [Suspect]
     Route: 048
     Dates: start: 20060417
  3. SEROQUEL [Suspect]
     Route: 048
     Dates: start: 20060418, end: 20060501
  4. ADDERALL 10 [Suspect]
     Dates: start: 20060501, end: 20060508
  5. ADDERALL 10 [Suspect]
     Dates: start: 20060508, end: 20060508
  6. DEPAKOTE [Suspect]
     Route: 048
  7. DEPAKOTE [Suspect]
     Route: 048
  8. DEPAKOTE [Suspect]
     Route: 048
     Dates: start: 20050628
  9. DEPAKOTE [Suspect]
     Route: 048
     Dates: start: 20060101, end: 20070101
  10. ANAPROX DS [Concomitant]
     Indication: BACK PAIN
     Dates: start: 20060227
  11. FLEXERIL [Concomitant]
     Indication: BACK PAIN
     Dates: start: 20060227
  12. TORADOL [Concomitant]
     Indication: BACK PAIN
     Route: 030
     Dates: start: 20051206, end: 20051206
  13. TORADOL [Concomitant]
     Route: 030
     Dates: start: 20060227, end: 20060227
  14. NORFLEX [Concomitant]
     Indication: BACK PAIN
     Route: 030
     Dates: start: 20051206, end: 20051206
  15. NORFLEX [Concomitant]
     Route: 030
     Dates: start: 20060227, end: 20060227
  16. ZYPREXA [Concomitant]
     Dates: start: 20060413
  17. PHENERGAN HCL [Concomitant]
     Route: 030
     Dates: start: 20051206, end: 20051206
  18. PHENERGAN HCL [Concomitant]
     Route: 054
     Dates: start: 20051206, end: 20051206
  19. MOTRIN [Concomitant]
     Dates: start: 20051201

REACTIONS (8)
  - ABDOMINAL PAIN [None]
  - AGGRESSION [None]
  - BACK PAIN [None]
  - DEPRESSION [None]
  - DISTURBANCE IN ATTENTION [None]
  - HALLUCINATION, AUDITORY [None]
  - INSOMNIA [None]
  - SUICIDE ATTEMPT [None]
